FAERS Safety Report 4623696-8 (Version None)
Quarter: 2005Q1

REPORT INFORMATION
  Report Type: 
  Country: None (occurrence: None)
  Receive Date: 20050329
  Receipt Date: 20050316
  Transmission Date: 20050727
  Serious: Yes (Other)
  Sender: FDA-Public Use
  Company Number: 2005046893

PATIENT
  Age: 53 Year
  Sex: Male

DRUGS (3)
  1. PREDNISONE [Suspect]
     Indication: ILL-DEFINED DISORDER
  2. CYCLOSPORINE [Suspect]
     Indication: RENAL TRANSPLANT
  3. AZATHIOPRINE [Suspect]
     Indication: ILL-DEFINED DISORDER

REACTIONS (9)
  - CELLULITIS [None]
  - ERYTHEMA [None]
  - GRANULOMA [None]
  - INFLAMMATION [None]
  - NODULE [None]
  - OEDEMA PERIPHERAL [None]
  - RASH [None]
  - SKIN ULCER [None]
  - THERAPEUTIC PRODUCT INEFFECTIVE [None]
